FAERS Safety Report 5298905-5 (Version None)
Quarter: 2007Q2

REPORT INFORMATION
  Report Type: 
  Country: None (occurrence: None)
  Receive Date: 20070417
  Receipt Date: 20070404
  Transmission Date: 20071010
  Serious: Yes (Other)
  Sender: FDA-Public Use
  Company Number: PHNU2007DE01027

PATIENT
  Age: 64 Year
  Sex: Female
  Weight: 68 kg

DRUGS (2)
  1. ZOMETA [Suspect]
     Indication: METASTASES TO BONE
     Dosage: 4 MG, QMO
     Dates: start: 20031121, end: 20070224
  2. NAVELBINE [Concomitant]
     Indication: BREAST CANCER
     Dosage: 25 MG/M2, UNK
     Dates: start: 20060710, end: 20061116

REACTIONS (6)
  - DENTAL TREATMENT [None]
  - GINGIVAL ULCERATION [None]
  - IMPAIRED HEALING [None]
  - JAW DISORDER [None]
  - JAW LESION EXCISION [None]
  - OSTEONECROSIS [None]
